FAERS Safety Report 20979685 (Version 1)
Quarter: 2022Q2

REPORT INFORMATION
  Report Type: Spontaneous
  Country: US (occurrence: None)
  Receive Date: 20220620
  Receipt Date: 20220620
  Transmission Date: 20220721
  Serious: No
  Sender: FDA-Public Use
  Company Number: US-Unichem Pharmaceuticals (USA) Inc-UCM202203-000241

PATIENT
  Age: 48 Year
  Sex: Male
  Weight: 94.8 kg

DRUGS (6)
  1. GUANFACINE [Suspect]
     Active Substance: GUANFACINE
     Indication: Postural orthostatic tachycardia syndrome
     Route: 048
  2. GUANFACINE [Suspect]
     Active Substance: GUANFACINE
     Indication: Hypertension
  3. CROMOLYN [Concomitant]
     Active Substance: CROMOLYN
     Indication: Mast cell activation syndrome
     Dosage: UNKNOWN
  4. SERTRALINE [Concomitant]
     Active Substance: SERTRALINE HYDROCHLORIDE
     Indication: Product used for unknown indication
     Dosage: UNKNOWN
  5. CETIRIZINE [Concomitant]
     Active Substance: CETIRIZINE HYDROCHLORIDE
     Indication: Product used for unknown indication
     Dosage: UNKNOWN
  6. CITALOPRAM [Concomitant]
     Active Substance: CITALOPRAM HYDROBROMIDE
     Indication: Product used for unknown indication

REACTIONS (5)
  - Peripheral swelling [Recovered/Resolved]
  - Joint swelling [Recovered/Resolved]
  - Irritability [Recovered/Resolved]
  - Drug ineffective [Unknown]
  - Drug ineffective for unapproved indication [Unknown]

NARRATIVE: CASE EVENT DATE: 20220101
